FAERS Safety Report 23232141 (Version 2)
Quarter: 2023Q4

REPORT INFORMATION
  Report Type: Spontaneous
  Country: JP (occurrence: JP)
  Receive Date: 20231127
  Receipt Date: 20231206
  Transmission Date: 20240110
  Serious: Yes (Hospitalization)
  Sender: FDA-Public Use
  Company Number: JP-WW-2023-JPN-155076

PATIENT
  Age: 75 Year
  Sex: Male

DRUGS (1)
  1. DUTASTERIDE [Suspect]
     Active Substance: DUTASTERIDE
     Route: 050

REACTIONS (3)
  - Hospitalisation [Unknown]
  - Product use issue [Unknown]
  - Wrong technique in product usage process [Unknown]
